FAERS Safety Report 13945930 (Version 1)
Quarter: 2017Q3

REPORT INFORMATION
  Report Type: Spontaneous
  Country: US (occurrence: US)
  Receive Date: 20170907
  Receipt Date: 20170907
  Transmission Date: 20171128
  Serious: No
  Sender: FDA-Public Use
  Company Number: US-BIO PRODUCTS LABORATORY LTD-2025674

PATIENT
  Age: 42 Year
  Sex: Male
  Weight: 60.78 kg

DRUGS (1)
  1. GAMMAPLEX [Suspect]
     Active Substance: HUMAN IMMUNOGLOBULIN G
     Indication: POLYNEUROPATHY
     Route: 042
     Dates: start: 20170116, end: 20170119

REACTIONS (3)
  - Dyshidrotic eczema [Recovered/Resolved]
  - Application site rash [None]
  - Drug ineffective [None]

NARRATIVE: CASE EVENT DATE: 20170121
